FAERS Safety Report 21867074 (Version 2)
Quarter: 2024Q4

REPORT INFORMATION
  Report Type: Report from Study
  Country: US (occurrence: US)
  Receive Date: 20230116
  Receipt Date: 20241101
  Transmission Date: 20250115
  Serious: Yes (Hospitalization, Other)
  Sender: ITALFARMACO SPA
  Company Number: US-ITALFARMACO SPA-2136749

PATIENT
  Age: 60 Year
  Sex: Male

DRUGS (6)
  1. TIGLUTIK [Suspect]
     Active Substance: RILUZOLE
     Indication: Amyotrophic lateral sclerosis
     Dates: start: 20220512
  2. AMLODIPINE [Concomitant]
     Active Substance: AMLODIPINE BESYLATE
  3. LOSARTAN [Concomitant]
     Active Substance: LOSARTAN
  4. ISOSOURCE HN [Concomitant]
     Active Substance: AMINO ACIDS\DEXTROSE\ELECTROLYTES NOS\SOYBEAN OIL\VITAMINS
  5. ATORVASTATIN [Concomitant]
     Active Substance: ATORVASTATIN
  6. ASPIRIN [Concomitant]
     Active Substance: ASPIRIN

REACTIONS (2)
  - Pneumonia [Unknown]
  - Product dose omission issue [Unknown]

NARRATIVE: CASE EVENT DATE: 20221230
